FAERS Safety Report 5899479-8 (Version None)
Quarter: 2008Q3

REPORT INFORMATION
  Report Type: 
  Country: None (occurrence: None)
  Receive Date: 20080926
  Receipt Date: 20080923
  Transmission Date: 20090109
  Serious: Yes (Death, Hospitalization, Disabling)
  Sender: FDA-Public Use
  Company Number: IT-JNJFOC-20080700307

PATIENT
  Sex: Female

DRUGS (20)
  1. DOXORUBICIN HCL [Suspect]
     Indication: OVARIAN CANCER
     Route: 042
  2. LASIX [Concomitant]
     Route: 065
  3. OXYCONTIN [Concomitant]
     Route: 065
  4. RAMIPRIL [Concomitant]
     Route: 065
  5. HYDROCORTISONE [Concomitant]
     Route: 065
  6. NESPO [Concomitant]
     Route: 065
  7. BENADON [Concomitant]
     Route: 065
  8. TORADOL [Concomitant]
     Route: 065
  9. RANIDIL [Concomitant]
     Route: 065
  10. SOLU-CORTEF [Concomitant]
     Route: 065
  11. TRIMETON [Concomitant]
     Route: 065
  12. MOVICOL [Concomitant]
     Route: 065
  13. SOLDESAM [Concomitant]
     Route: 065
  14. ZANTAC [Concomitant]
     Route: 065
  15. NAVOBAN [Concomitant]
     Route: 065
  16. X-PREP [Concomitant]
     Route: 065
  17. FLUSS [Concomitant]
     Route: 065
  18. MORFINA MIRO [Concomitant]
     Route: 065
  19. PLASIL [Concomitant]
     Route: 065
  20. ALBUMIN [Concomitant]
     Route: 065

REACTIONS (8)
  - ANAEMIA [None]
  - COMA URAEMIC [None]
  - DRUG INEFFECTIVE [None]
  - GASTROINTESTINAL HAEMORRHAGE [None]
  - GENERAL PHYSICAL HEALTH DETERIORATION [None]
  - GENERALISED OEDEMA [None]
  - OVARIAN CANCER [None]
  - RENAL FAILURE [None]
